APPROVED DRUG PRODUCT: EXTENDED PHENYTOIN SODIUM
Active Ingredient: PHENYTOIN SODIUM
Strength: 100MG EXTENDED
Dosage Form/Route: CAPSULE;ORAL
Application: A040732 | Product #001
Applicant: WOCKHARDT USA INC
Approved: Jan 30, 2008 | RLD: No | RS: No | Type: DISCN